FAERS Safety Report 25519580 (Version 2)
Quarter: 2025Q3

REPORT INFORMATION
  Report Type: Spontaneous
  Country: BR (occurrence: BR)
  Receive Date: 20250704
  Receipt Date: 20250730
  Transmission Date: 20251020
  Serious: Yes (Other)
  Sender: ALEXION PHARMACEUTICALS
  Company Number: BR-ASTRAZENECA-202506SAM025097BR

PATIENT
  Age: 94 Year
  Sex: Male
  Weight: 72 kg

DRUGS (17)
  1. LOKELMA [Suspect]
     Active Substance: SODIUM ZIRCONIUM CYCLOSILICATE
     Dosage: 10 GRAINS, QD
     Route: 065
     Dates: start: 20250609
  2. LOKELMA [Suspect]
     Active Substance: SODIUM ZIRCONIUM CYCLOSILICATE
     Dosage: 10 GRAINS, BID
     Route: 065
     Dates: start: 20250610
  3. LOKELMA [Suspect]
     Active Substance: SODIUM ZIRCONIUM CYCLOSILICATE
     Dosage: 5 GRAINS, BID
     Route: 065
     Dates: start: 20250611, end: 20250612
  4. LOKELMA [Suspect]
     Active Substance: SODIUM ZIRCONIUM CYCLOSILICATE
     Dosage: 5 GRAINS, Q8H
     Route: 065
     Dates: start: 20250612, end: 20250614
  5. LOKELMA [Suspect]
     Active Substance: SODIUM ZIRCONIUM CYCLOSILICATE
     Dosage: 1 SACHET EVERY 8 HOURS
  6. Meropenem ab [Concomitant]
     Route: 065
  7. VANCOMYCIN [Concomitant]
     Active Substance: VANCOMYCIN
  8. DEXAMETHASONE [Concomitant]
     Active Substance: DEXAMETHASONE
  9. METHADONE [Concomitant]
     Active Substance: METHADONE HYDROCHLORIDE
     Route: 065
  10. DIPYRONE [Concomitant]
     Active Substance: DIPYRONE
     Route: 065
  11. OMEPRAZOLE [Concomitant]
     Active Substance: OMEPRAZOLE
     Route: 065
  12. Bitamin [Concomitant]
     Route: 065
  13. HEPARIN [Concomitant]
     Active Substance: HEPARIN SODIUM
     Route: 065
  14. ALBUTEROL [Concomitant]
     Active Substance: ALBUTEROL
     Route: 065
  15. HYPROMELLOSES [Concomitant]
     Active Substance: HYPROMELLOSES
     Route: 065
  16. Cold Cream Naturel [Concomitant]
     Route: 065
  17. PROPOFOL [Concomitant]
     Active Substance: PROPOFOL
     Route: 065

REACTIONS (1)
  - Hyperkalaemia [Recovered/Resolved]

NARRATIVE: CASE EVENT DATE: 20250612
